FAERS Safety Report 25394830 (Version 1)
Quarter: 2025Q2

REPORT INFORMATION
  Report Type: Spontaneous
  Country: GB (occurrence: GB)
  Receive Date: 20250604
  Receipt Date: 20250604
  Transmission Date: 20250717
  Serious: Yes (Hospitalization)
  Sender: SANOFI AVENTIS
  Company Number: GB-SA-2025SA157420

PATIENT
  Age: 13 Year
  Sex: Female
  Weight: 55.7 kg

DRUGS (8)
  1. DUPIXENT [Suspect]
     Active Substance: DUPILUMAB
     Indication: Dermatitis atopic
     Dosage: 300 MG, QOW
     Route: 058
     Dates: start: 20240731, end: 20250216
  2. UPADACITINIB [Suspect]
     Active Substance: UPADACITINIB
  3. METHOTREXATE [Concomitant]
     Active Substance: METHOTREXATE
     Indication: Dermatitis atopic
     Dosage: 20 MG, QW
     Route: 058
     Dates: start: 20250501
  4. FLUCLOXACILLIN [Concomitant]
     Active Substance: FLUCLOXACILLIN
     Indication: Staphylococcal infection
     Route: 042
     Dates: start: 20231130, end: 20231207
  5. FLUCLOXACILLIN [Concomitant]
     Active Substance: FLUCLOXACILLIN
  6. AMITRIPTYLINE [Concomitant]
     Active Substance: AMITRIPTYLINE
     Dates: start: 20240730, end: 20240805
  7. PREDNISONE [Concomitant]
     Active Substance: PREDNISONE
     Route: 048
     Dates: start: 20241231, end: 20250107
  8. EPIMAX EXCETRA [Concomitant]
     Dates: start: 20241231

REACTIONS (12)
  - Immune system disorder [Recovered/Resolved]
  - Temperature regulation disorder [Recovered/Resolved]
  - Eczema infected [Recovered/Resolved]
  - Condition aggravated [Recovered/Resolved]
  - Erythrodermic atopic dermatitis [Recovered/Resolved]
  - Impetigo [Recovered/Resolved]
  - Skin abrasion [Recovered/Resolved]
  - Eczema [Recovered/Resolved]
  - Alopecia [Recovered/Resolved]
  - Flushing [Recovered/Resolved]
  - Pain [Recovered/Resolved]
  - Pain in extremity [Recovered/Resolved]

NARRATIVE: CASE EVENT DATE: 20241228
